FAERS Safety Report 24952345 (Version 2)
Quarter: 2025Q1

REPORT INFORMATION
  Report Type: Spontaneous
  Country: US (occurrence: US)
  Receive Date: 20250210
  Receipt Date: 20250304
  Transmission Date: 20250409
  Serious: Yes (Hospitalization)
  Sender: DOMPE FARMACEUTICI
  Company Number: US-FARMAPROD-202412-4375

PATIENT
  Age: 76 Year
  Sex: Male
  Weight: 78.02 kg

DRUGS (4)
  1. OXERVATE [Suspect]
     Active Substance: CENEGERMIN-BKBJ
     Indication: Neurotrophic keratopathy
     Route: 047
     Dates: start: 20241213, end: 20241230
  2. OXERVATE [Suspect]
     Active Substance: CENEGERMIN-BKBJ
     Dates: start: 20250108
  3. PRESERVATIVE FREE ARTIFICIAL TEARS [Concomitant]
     Indication: Dry eye
     Route: 047
     Dates: start: 2020
  4. OPTASE [Concomitant]
     Indication: Dry eye
     Route: 047
     Dates: start: 2020

REACTIONS (4)
  - Knee arthroplasty [Unknown]
  - Therapy interrupted [Recovered/Resolved]
  - Eye irritation [Not Recovered/Not Resolved]
  - Ocular discomfort [Not Recovered/Not Resolved]

NARRATIVE: CASE EVENT DATE: 20241230
